FAERS Safety Report 14615191 (Version 8)
Quarter: 2020Q1

REPORT INFORMATION
  Report Type: Spontaneous
  Country: US (occurrence: US)
  Receive Date: 20180308
  Receipt Date: 20200115
  Transmission Date: 20200409
  Serious: Yes (Hospitalization, Disabling, Other)
  Sender: FDA-Public Use
  Company Number: US-ACTELION-A-NJ2018-168633

PATIENT
  Sex: Female

DRUGS (10)
  1. METAMUCIL [Concomitant]
     Active Substance: PLANTAGO SEED
  2. PRILOSEC [Concomitant]
     Active Substance: OMEPRAZOLE MAGNESIUM
     Dosage: 20 MG, QD
  3. POTASSIUM [Concomitant]
     Active Substance: POTASSIUM
     Dosage: 20 MG, QD
  4. DULCOLAX NOS [Concomitant]
     Active Substance: BISACODYL OR DOCUSATE SODIUM
  5. XARELTO [Concomitant]
     Active Substance: RIVAROXABAN
     Dosage: 20 MG, QD
  6. OPSUMIT [Suspect]
     Active Substance: MACITENTAN
     Indication: PULMONARY ARTERIAL HYPERTENSION
     Dosage: 10 MG, QD
     Route: 048
     Dates: start: 20171031
  7. ADEMPAS [Concomitant]
     Active Substance: RIOCIGUAT
     Dosage: 2.5 MG, TID
     Dates: start: 2015
  8. LIPITOR [Concomitant]
     Active Substance: ATORVASTATIN CALCIUM
     Dosage: 40 MG, QD
  9. FUROSEMIDE. [Concomitant]
     Active Substance: FUROSEMIDE
     Dosage: 40 MG, BID
  10. OXYGEN. [Concomitant]
     Active Substance: OXYGEN

REACTIONS (23)
  - Myocardial infarction [Unknown]
  - Lethargy [Not Recovered/Not Resolved]
  - Condition aggravated [Unknown]
  - Palpitations [Unknown]
  - Oxygen consumption increased [Not Recovered/Not Resolved]
  - Oxygen saturation decreased [Not Recovered/Not Resolved]
  - Thrombosis [Unknown]
  - Cardiac disorder [Unknown]
  - Loss of consciousness [Unknown]
  - Nasal congestion [Unknown]
  - Abdominal distension [Not Recovered/Not Resolved]
  - Suicidal ideation [Unknown]
  - Stress [Unknown]
  - Constipation [Not Recovered/Not Resolved]
  - Mania [Unknown]
  - Memory impairment [Unknown]
  - Malaise [Not Recovered/Not Resolved]
  - Depression [Unknown]
  - Anxiety [Unknown]
  - Rectal haemorrhage [Recovered/Resolved]
  - Lung neoplasm malignant [Unknown]
  - Oxygen therapy [Unknown]
  - Bipolar disorder [Unknown]

NARRATIVE: CASE EVENT DATE: 2018
